FAERS Safety Report 14627461 (Version 3)
Quarter: 2018Q2

REPORT INFORMATION
  Report Type: Spontaneous
  Country: CO (occurrence: CO)
  Receive Date: 20180312
  Receipt Date: 20180530
  Transmission Date: 20180711
  Serious: Yes (Hospitalization, Other)
  Sender: FDA-Public Use
  Company Number: CO-JNJFOC-20180310570

PATIENT
  Age: 49 Year
  Sex: Female

DRUGS (8)
  1. XARELTO [Suspect]
     Active Substance: RIVAROXABAN
     Indication: PRODUCT USED FOR UNKNOWN INDICATION
     Route: 048
     Dates: start: 2016, end: 20170923
  2. ADEMPAS [Suspect]
     Active Substance: RIOCIGUAT
     Indication: PULMONARY HYPERTENSION
     Route: 048
  3. DABIGATRAN [Suspect]
     Active Substance: DABIGATRAN
     Indication: PERIPHERAL ARTERY THROMBOSIS
     Route: 065
  4. LEVOTHYROXINE. [Concomitant]
     Active Substance: LEVOTHYROXINE
     Route: 065
  5. ADEMPAS [Suspect]
     Active Substance: RIOCIGUAT
     Indication: PULMONARY HYPERTENSION
     Route: 048
     Dates: start: 20170810
  6. PREGABALIN. [Suspect]
     Active Substance: PREGABALIN
     Indication: PRODUCT USED FOR UNKNOWN INDICATION
     Route: 065
  7. ADEMPAS [Suspect]
     Active Substance: RIOCIGUAT
     Indication: PULMONARY HYPERTENSION
     Route: 048
     Dates: start: 20171125
  8. OXYGEN. [Concomitant]
     Active Substance: OXYGEN
     Route: 065
     Dates: start: 2010

REACTIONS (12)
  - Epistaxis [Recovered/Resolved]
  - Choking sensation [Not Recovered/Not Resolved]
  - Pruritus [Recovered/Resolved]
  - Painful respiration [Recovered/Resolved]
  - Mouth haemorrhage [Recovered/Resolved]
  - Pain in extremity [Not Recovered/Not Resolved]
  - Hypertension [Not Recovered/Not Resolved]
  - Peripheral artery thrombosis [Recovering/Resolving]
  - Pain in extremity [Not Recovered/Not Resolved]
  - Vertigo [Recovered/Resolved]
  - Headache [Not Recovered/Not Resolved]
  - Fatigue [Recovered/Resolved]

NARRATIVE: CASE EVENT DATE: 20170810
